FAERS Safety Report 5394338-1 (Version None)
Quarter: 2007Q3

REPORT INFORMATION
  Report Type: 
  Country: None (occurrence: None)
  Receive Date: 20070723
  Receipt Date: 20070524
  Transmission Date: 20080115
  Serious: No
  Sender: FDA-Public Use
  Company Number: A0652863A

PATIENT
  Age: 67 Year
  Sex: Male

DRUGS (8)
  1. AVANDIA [Suspect]
     Dosage: 4MG TWICE PER DAY
     Route: 048
     Dates: end: 20070521
  2. GLYBURIDE [Concomitant]
  3. LISINOPRIL [Concomitant]
  4. TERAZOSIN HCL [Concomitant]
  5. LOVASTATIN [Concomitant]
  6. INSULIN [Concomitant]
  7. ASPIRIN [Concomitant]
  8. CALCIUM SUPPLEMENT [Concomitant]

REACTIONS (1)
  - WEIGHT INCREASED [None]
